FAERS Safety Report 15411107 (Version 2)
Quarter: 2018Q4

REPORT INFORMATION
  Report Type: Spontaneous
  Country: US (occurrence: US)
  Receive Date: 20180921
  Receipt Date: 20181207
  Transmission Date: 20190204
  Serious: No
  Sender: FDA-Public Use
  Company Number: US-GLENMARK PHARMACEUTICALS-2018GMK037189

PATIENT

DRUGS (2)
  1. ATOMOXETINE HCL CAPSULES [Suspect]
     Active Substance: ATOMOXETINE HYDROCHLORIDE
     Indication: DISTURBANCE IN ATTENTION
     Dosage: 25 MG, AM
     Route: 065
     Dates: start: 20180729
  2. ZOLOFT [Concomitant]
     Active Substance: SERTRALINE HYDROCHLORIDE
     Indication: ANXIETY
     Dosage: UNK
     Route: 065

REACTIONS (2)
  - Product substitution issue [Unknown]
  - Enuresis [Not Recovered/Not Resolved]

NARRATIVE: CASE EVENT DATE: 201808
